FAERS Safety Report 18377968 (Version 1)
Quarter: 2020Q4

REPORT INFORMATION
  Report Type: Spontaneous
  Country: RU (occurrence: RU)
  Receive Date: 20201013
  Receipt Date: 20201013
  Transmission Date: 20210114
  Serious: Yes (Other)
  Sender: FDA-Public Use
  Company Number: RU-BAYER-2020-216481

PATIENT
  Age: 52 Year
  Sex: Female

DRUGS (3)
  1. MIRENA [Suspect]
     Active Substance: LEVONORGESTREL
     Dosage: 20 ?G PER DAY, CONTINUOUSLY
     Route: 015
  2. ESTROGEL [Concomitant]
     Active Substance: ESTRADIOL
  3. FOLLICLE-STIMULATING HORMONE, HUMAN [Concomitant]

REACTIONS (3)
  - Adenocarcinoma gastric [None]
  - Weight decreased [None]
  - Vaginal haemorrhage [None]
